FAERS Safety Report 9443438 (Version 1)
Quarter: 2013Q3

REPORT INFORMATION
  Report Type: Spontaneous
  Country: US (occurrence: US)
  Receive Date: 20130806
  Receipt Date: 20130806
  Transmission Date: 20140515
  Serious: Yes (Life-Threatening, Disabling, Other)
  Sender: FDA-Public Use
  Company Number: PHEH2013US013962

PATIENT
  Age: 12 Year
  Sex: Male
  Weight: 26.8 kg

DRUGS (31)
  1. MYFORTIC [Suspect]
     Dosage: 360 MG, BID (PAST YEAR)
     Route: 048
     Dates: start: 20100607
  2. MYFORTIC [Suspect]
     Dosage: 180 MG, DAILY
     Route: 048
     Dates: start: 20110117
  3. MYFORTIC [Suspect]
     Dosage: 180 MG, DAILY
     Route: 048
     Dates: start: 20120127, end: 20120212
  4. MYFORTIC [Suspect]
     Dosage: 360 MG, BID
     Route: 048
     Dates: start: 20130408
  5. MYFORTIC [Suspect]
     Dosage: 540 MG, BID
     Route: 048
     Dates: start: 20130625
  6. CELLCEPT [Concomitant]
     Dosage: UNK
  7. WELCHOL [Concomitant]
     Dosage: UNK
  8. WELCHOL [Concomitant]
     Dosage: UNK UKN, UNK
     Route: 048
     Dates: start: 20100920
  9. LISINOPRIL [Concomitant]
     Dosage: UNK
  10. NORVASC [Concomitant]
     Indication: PROPHYLAXIS
     Dosage: 7.5 MG, DAILY
     Route: 048
     Dates: start: 20100623, end: 20101220
  11. ATENOLOL [Concomitant]
     Dosage: UNK, QD
  12. ATENOLOL [Concomitant]
     Dosage: 125 MG, UNK
     Route: 048
     Dates: start: 20130422
  13. URSODIOL [Concomitant]
     Dosage: UNK
  14. XIFAXAN [Concomitant]
     Dosage: 200 MG, BID
     Route: 048
  15. VALCYTE [Concomitant]
     Dosage: 250 MG, UNK
     Route: 048
  16. CALCIUM CARBONATE [Concomitant]
     Dosage: UNK
  17. SODIUM BICARBONATE [Concomitant]
     Dosage: 1950 MG, 3/DAY
     Route: 048
     Dates: start: 20130404
  18. VITAMIN D [Concomitant]
     Dosage: 2000 UNITS DAILY
     Route: 048
  19. CITRACAL [Concomitant]
     Dosage: UNK
  20. HORMONES [Concomitant]
     Dosage: UNK UKN, QD
  21. PROCRIT [Concomitant]
     Indication: ANAEMIA
     Dosage: ONCE PER WEEK
  22. PROCRIT [Concomitant]
     Indication: RENAL FAILURE CHRONIC
     Dosage: 4000 UNITS
     Dates: start: 20110922
  23. RENVELA [Concomitant]
     Dosage: UNK, BID
  24. PREDNISONE [Concomitant]
     Indication: IMMUNOSUPPRESSION
     Dosage: UNK UKN, UNK
     Route: 042
  25. TACROLIMUS [Concomitant]
     Indication: IMMUNOSUPPRESSION
     Dosage: UNK UKN, UNK
     Route: 048
  26. BACTRIM [Concomitant]
     Dosage: 80 MG, DAILY
     Route: 048
  27. VALGANCICLOVIR [Concomitant]
     Dosage: 625 MG, DAILY
     Route: 048
     Dates: start: 20100623, end: 20101231
  28. BASILIXIMAB [Concomitant]
     Dosage: 2 DF, UNK
     Route: 042
  29. NYSTATIN [Concomitant]
     Dosage: 5 MG, 4/DAY
     Route: 048
  30. PROTONIX [Concomitant]
     Indication: PROPHYLAXIS
     Dosage: 40 MG, DAILY
     Route: 048
     Dates: start: 20100623
  31. DAPSONE [Concomitant]
     Indication: PROPHYLAXIS
     Dosage: 50 MG, DAILY
     Route: 048

REACTIONS (10)
  - Respiratory arrest [Recovered/Resolved]
  - Bradycardia [Unknown]
  - Chest discomfort [Unknown]
  - Intra-abdominal haematoma [Recovered/Resolved]
  - Hypersensitivity [Unknown]
  - Kidney transplant rejection [Not Recovered/Not Resolved]
  - Blood cholesterol increased [Recovering/Resolving]
  - Epstein-Barr virus infection [Recovering/Resolving]
  - Diarrhoea [Recovered/Resolved]
  - Thrombosis [Unknown]
